FAERS Safety Report 5906744-4 (Version None)
Quarter: 2008Q3

REPORT INFORMATION
  Report Type: 
  Country: None (occurrence: None)
  Receive Date: 20080930
  Receipt Date: 20080916
  Transmission Date: 20090109
  Serious: Yes (Hospitalization)
  Sender: FDA-Public Use
  Company Number: 2008JP004565

PATIENT
  Age: 32 Year
  Sex: Male

DRUGS (5)
  1. TACROLIMUS [Suspect]
     Indication: RENAL TRANSPLANT
  2. PREDNISOLONE [Concomitant]
  3. MYCOPHENOLATE MOFETIL [Concomitant]
  4. BASILIXIMAB (BASILIXIMAB) FORMULATION UNKNOWN [Concomitant]
  5. METHYLPREDNISOLONE [Concomitant]

REACTIONS (2)
  - NEPHROPATHY TOXIC [None]
  - THROMBOTIC MICROANGIOPATHY [None]
